FAERS Safety Report 24704936 (Version 2)
Quarter: 2025Q1

REPORT INFORMATION
  Report Type: Spontaneous
  Country: AR (occurrence: AR)
  Receive Date: 20241206
  Receipt Date: 20250108
  Transmission Date: 20250409
  Serious: Yes (Other)
  Sender: ROCHE
  Company Number: AR-ROCHE-10000148336

PATIENT
  Age: 46 Year
  Sex: Female

DRUGS (20)
  1. RITUXIMAB [Suspect]
     Active Substance: RITUXIMAB
     Indication: Diffuse large B-cell lymphoma
     Route: 065
     Dates: start: 20220613
  2. RITUXIMAB [Suspect]
     Active Substance: RITUXIMAB
     Indication: Respiratory distress
     Route: 065
     Dates: start: 20240606, end: 20240801
  3. RITUXIMAB [Suspect]
     Active Substance: RITUXIMAB
     Route: 065
     Dates: start: 20240827, end: 20241101
  4. RITUXIMAB [Suspect]
     Active Substance: RITUXIMAB
     Route: 065
     Dates: start: 20220701, end: 20221201
  5. CYCLOPHOSPHAMIDE [Concomitant]
     Active Substance: CYCLOPHOSPHAMIDE
     Indication: Diffuse large B-cell lymphoma
     Dates: start: 20220613
  6. CYCLOPHOSPHAMIDE [Concomitant]
     Active Substance: CYCLOPHOSPHAMIDE
     Indication: Respiratory distress
     Dates: start: 20220701, end: 20221201
  7. DOXORUBICIN [Concomitant]
     Active Substance: DOXORUBICIN
     Indication: Diffuse large B-cell lymphoma
     Dates: start: 20220701, end: 20221201
  8. DOXORUBICIN [Concomitant]
     Active Substance: DOXORUBICIN
     Indication: Respiratory distress
  9. VINCRISTINE [Concomitant]
     Active Substance: VINCRISTINE
     Indication: Diffuse large B-cell lymphoma
     Dates: start: 20220613
  10. VINCRISTINE [Concomitant]
     Active Substance: VINCRISTINE
     Indication: Respiratory distress
     Dates: start: 20220701, end: 20221201
  11. PREDNISONE [Concomitant]
     Active Substance: PREDNISONE
     Indication: Diffuse large B-cell lymphoma
     Dates: start: 20220613
  12. PREDNISONE [Concomitant]
     Active Substance: PREDNISONE
     Indication: Respiratory distress
     Dates: start: 20220701, end: 20221201
  13. ETOPOSIDE [Concomitant]
     Active Substance: ETOPOSIDE
     Indication: Diffuse large B-cell lymphoma
     Dates: start: 20220701, end: 20221201
  14. ETOPOSIDE [Concomitant]
     Active Substance: ETOPOSIDE
     Dates: start: 20240606, end: 20240801
  15. METHYLPREDNISOLONE [Concomitant]
     Active Substance: METHYLPREDNISOLONE
     Indication: Diffuse large B-cell lymphoma
     Dates: start: 20240606, end: 20240801
  16. CYTARABINE [Concomitant]
     Active Substance: CYTARABINE
     Indication: Diffuse large B-cell lymphoma
     Dates: start: 20240606, end: 20240801
  17. CISPLATIN [Concomitant]
     Active Substance: CISPLATIN
     Indication: Diffuse large B-cell lymphoma
     Dates: start: 20240606, end: 20240801
  18. IFOSFAMIDE [Concomitant]
     Active Substance: IFOSFAMIDE
     Indication: Diffuse large B-cell lymphoma
     Dates: start: 20240827, end: 20241101
  19. GEMCITABINE [Concomitant]
     Active Substance: GEMCITABINE
     Indication: Diffuse large B-cell lymphoma
     Dates: start: 20240827, end: 20241101
  20. VINORELBINE [Concomitant]
     Active Substance: VINORELBINE TARTRATE
     Indication: Diffuse large B-cell lymphoma
     Dates: start: 20240827, end: 20241101

REACTIONS (3)
  - Neutropenia [Unknown]
  - Diffuse large B-cell lymphoma recurrent [Unknown]
  - Ill-defined disorder [Unknown]

NARRATIVE: CASE EVENT DATE: 20240101
